FAERS Safety Report 6770654-3 (Version None)
Quarter: 2010Q2

REPORT INFORMATION
  Report Type: 
  Country: None (occurrence: None)
  Receive Date: 20100520
  Receipt Date: 20090924
  Transmission Date: 20101027
  Serious: Yes (Other)
  Sender: FDA-Public Use
  Company Number: 2009274738

PATIENT
  Age: 47 Year
  Sex: Female
  Weight: 78 kg

DRUGS (12)
  1. PROVERA [Suspect]
     Indication: HORMONE REPLACEMENT THERAPY
     Dosage: 60 MG, ORAL; 10 MG, ORAL; 10 MG ORAL
     Route: 048
     Dates: start: 19851101, end: 19851201
  2. PROVERA [Suspect]
     Indication: HORMONE REPLACEMENT THERAPY
     Dosage: 60 MG, ORAL; 10 MG, ORAL; 10 MG ORAL
     Route: 048
     Dates: start: 19930601, end: 19960101
  3. PROVERA [Suspect]
     Indication: HORMONE REPLACEMENT THERAPY
     Dosage: 60 MG, ORAL; 10 MG, ORAL; 10 MG ORAL
     Route: 048
     Dates: start: 19851101
  4. MEDROXYPROGESTERONE ACETATE [Suspect]
     Indication: HORMONE REPLACEMENT THERAPY
     Dosage: 10 MG
     Route: 048
     Dates: start: 20001201, end: 20020601
  5. PREMARIN [Suspect]
     Indication: HORMONE REPLACEMENT THERAPY
     Dosage: 2.5 MG; 0.625 MG; 0.9 MG
     Dates: start: 19851101, end: 19851201
  6. PREMARIN [Suspect]
     Indication: HORMONE REPLACEMENT THERAPY
     Dosage: 2.5 MG; 0.625 MG; 0.9 MG
     Dates: start: 19930601, end: 19950801
  7. PREMARIN [Suspect]
     Indication: HORMONE REPLACEMENT THERAPY
     Dosage: 2.5 MG; 0.625 MG; 0.9 MG
     Dates: start: 19950801, end: 19960101
  8. NORLUTATE [Suspect]
     Indication: HORMONE REPLACEMENT THERAPY
     Dosage: 5 - 10 MG FOR 6 WEEKS
     Dates: start: 19851201
  9. PREMPRO [Suspect]
     Indication: HORMONE REPLACEMENT THERAPY
     Dates: start: 19960101, end: 20011201
  10. SYNTHROID [Concomitant]
  11. LORTAB [Concomitant]
  12. VITAMIN B12 [Concomitant]

REACTIONS (1)
  - BREAST CANCER [None]
